FAERS Safety Report 10302220 (Version 1)
Quarter: 2014Q3

REPORT INFORMATION
  Report Type: Spontaneous
  Country: US (occurrence: US)
  Receive Date: 20140714
  Receipt Date: 20140714
  Transmission Date: 20150326
  Serious: No
  Sender: FDA-Public Use
  Company Number: US-BAUSCH-BL-2014-002058

PATIENT
  Age: 83 Year
  Sex: Male
  Weight: 70.37 kg

DRUGS (1)
  1. BESIVANCE [Suspect]
     Active Substance: BESIFLOXACIN
     Indication: EYE OPERATION
     Dosage: 1 DROP IN RIGHT EYE TID
     Route: 061
     Dates: start: 20140414, end: 20140416

REACTIONS (2)
  - Eye irritation [Recovering/Resolving]
  - Off label use [Unknown]

NARRATIVE: CASE EVENT DATE: 20140414
